FAERS Safety Report 8177708-8 (Version None)
Quarter: 2012Q1

REPORT INFORMATION
  Report Type: 
  Country: None (occurrence: None)
  Receive Date: 20120301
  Receipt Date: 20120227
  Transmission Date: 20120608
  Serious: Yes (Death)
  Sender: FDA-Public Use
  Company Number: PHEH2012US002436

PATIENT
  Age: 58 Year
  Sex: Male

DRUGS (3)
  1. SANDOSTATIN [Suspect]
     Dosage: UNK
  2. OXYCODONE HCL [Concomitant]
     Indication: PAIN
     Dosage: UNK
  3. SANDOSTATIN LAR [Suspect]
     Dosage: UNK

REACTIONS (1)
  - CARCINOID SYNDROME [None]
